FAERS Safety Report 9625023 (Version 2)
Quarter: 2013Q4

REPORT INFORMATION
  Report Type: Spontaneous
  Country: JP (occurrence: JP)
  Receive Date: 20131016
  Receipt Date: 20131016
  Transmission Date: 20140711
  Serious: Yes (Disabling)
  Sender: FDA-Public Use
  Company Number: JP-009507513-1309JPN007554

PATIENT
  Age: 70 Year
  Sex: Male
  Weight: 64 kg

DRUGS (6)
  1. ESLAX INTRAVENOUS 25MG/2.5ML [Suspect]
     Indication: NEUROMUSCULAR BLOCKING THERAPY
     Dosage: DAILY DOSE UNKNOWN
     Route: 042
  2. PROPOFOL [Concomitant]
     Indication: INDUCTION OF ANAESTHESIA
     Dosage: DAILY DOSE UNKNOWN
     Route: 042
  3. FENTANYL [Concomitant]
     Indication: INDUCTION OF ANAESTHESIA
     Dosage: DAILY DOSE UNKNOWN
     Route: 042
  4. SEVOFLURANE [Concomitant]
     Indication: MAINTENANCE OF ANAESTHESIA
     Dosage: DAILY DOSE UNKNOWN
     Route: 055
  5. OXYGEN [Concomitant]
     Dosage: DAILY DOSE UNKNOWN
     Route: 055
  6. NICORANDIL [Concomitant]
     Dosage: DAILY DOSE UNKNOWN
     Route: 042

REACTIONS (1)
  - Interstitial lung disease [Unknown]
